FAERS Safety Report 5245809-X (Version None)
Quarter: 2007Q1

REPORT INFORMATION
  Report Type: 
  Country: None (occurrence: None)
  Receive Date: 20070216
  Receipt Date: 20070201
  Transmission Date: 20070707
  Serious: Yes (Hospitalization, Disabling)
  Sender: FDA-Public Use
  Company Number: 2007RL000033

PATIENT
  Age: 77 Year
  Sex: Male
  Weight: 65.7716 kg

DRUGS (4)
  1. RYTHMOL [Suspect]
     Indication: HEART RATE IRREGULAR
     Dosage: 325 MG;BID;PO 225 MG;BID;PO
     Route: 048
     Dates: start: 20060411, end: 20060420
  2. RYTHMOL [Suspect]
     Indication: HEART RATE IRREGULAR
     Dosage: 325 MG;BID;PO 225 MG;BID;PO
     Route: 048
     Dates: start: 20060421, end: 20060424
  3. REMICADE [Concomitant]
  4. B12 [Concomitant]

REACTIONS (26)
  - ACTIVITIES OF DAILY LIVING IMPAIRED [None]
  - APATHY [None]
  - ARTHRALGIA [None]
  - BURNING SENSATION [None]
  - DISTURBANCE IN ATTENTION [None]
  - DRY MOUTH [None]
  - DYSPHONIA [None]
  - DYSSTASIA [None]
  - INSOMNIA [None]
  - JOINT SWELLING [None]
  - LUPUS-LIKE SYNDROME [None]
  - MOVEMENT DISORDER [None]
  - MUSCULOSKELETAL PAIN [None]
  - MUSCULOSKELETAL STIFFNESS [None]
  - NECK PAIN [None]
  - NO THERAPEUTIC RESPONSE [None]
  - OEDEMA PERIPHERAL [None]
  - PAIN [None]
  - PAIN IN EXTREMITY [None]
  - PARANASAL SINUS HYPERSECRETION [None]
  - PRODUCTIVE COUGH [None]
  - PULMONARY OEDEMA [None]
  - SENSORY DISTURBANCE [None]
  - SINUS DISORDER [None]
  - VISION BLURRED [None]
  - WEIGHT DECREASED [None]
